FAERS Safety Report 14483999 (Version 1)
Quarter: 2018Q1

REPORT INFORMATION
  Report Type: Spontaneous
  Country: CH (occurrence: CH)
  Receive Date: 20180205
  Receipt Date: 20180205
  Transmission Date: 20180509
  Serious: Yes (Other)
  Sender: FDA-Public Use
  Company Number: CH-MERCK KGAA-2041356

PATIENT
  Age: 27 Year
  Sex: Female

DRUGS (2)
  1. NOVALGIN (NOVO-PETRIN) [Concomitant]
  2. NOVOTHYROX [Suspect]
     Active Substance: LEVOTHYROXINE SODIUM
     Indication: HYPOTHYROIDISM

REACTIONS (7)
  - Seizure [None]
  - Headache [None]
  - Loss of personal independence in daily activities [None]
  - Influenza [Not Recovered/Not Resolved]
  - General physical health deterioration [None]
  - Vomiting [Not Recovered/Not Resolved]
  - Diarrhoea [Not Recovered/Not Resolved]
